FAERS Safety Report 4862459-5 (Version None)
Quarter: 2005Q4

REPORT INFORMATION
  Report Type: 
  Country: None (occurrence: None)
  Receive Date: 20051221
  Receipt Date: 20050923
  Transmission Date: 20060501
  Serious: Yes (Hospitalization)
  Sender: FDA-Public Use
  Company Number: PHRM2005FR02533

PATIENT
  Age: 68 Year
  Sex: Male

DRUGS (6)
  1. LEPONEX [Suspect]
     Indication: DEMENTIA
     Dosage: 100 MG, BID
     Route: 048
     Dates: start: 20050617
  2. SELOKEN [Concomitant]
     Indication: HYPERTENSION
     Route: 048
  3. HYZAAR [Concomitant]
     Indication: HYPERTENSION
     Route: 048
  4. PLAVIX [Concomitant]
     Route: 048
  5. KARDEGIC [Concomitant]
     Route: 048
  6. NOVONORM [Concomitant]
     Route: 048

REACTIONS (8)
  - CHEST PAIN [None]
  - DEHYDRATION [None]
  - ECG SIGNS OF MYOCARDIAL ISCHAEMIA [None]
  - LUNG DISORDER [None]
  - MYOCARDITIS [None]
  - PERICARDIAL EFFUSION [None]
  - RENAL FAILURE [None]
  - TROPONIN INCREASED [None]
